FAERS Safety Report 17221688 (Version 1)
Quarter: 2020Q1

REPORT INFORMATION
  Report Type: Spontaneous
  Country: US (occurrence: US)
  Receive Date: 20200101
  Receipt Date: 20200101
  Transmission Date: 20200409
  Serious: No
  Sender: FDA-Public Use
  Company Number: US-GLAXOSMITHKLINE-US2019236535

PATIENT
  Age: 24 Year
  Sex: Female

DRUGS (1)
  1. NICODERM CQ [Suspect]
     Active Substance: NICOTINE
     Indication: SMOKING CESSATION THERAPY
     Dosage: UNK, (SHE ONLY USED 3 PATCHES)
     Dates: start: 201909

REACTIONS (3)
  - Drug ineffective [Unknown]
  - Application site rash [Recovered/Resolved]
  - Drug hypersensitivity [Unknown]
